FAERS Safety Report 7238706-1 (Version None)
Quarter: 2011Q1

REPORT INFORMATION
  Report Type: 
  Country: None (occurrence: None)
  Receive Date: 20110121
  Receipt Date: 20110114
  Transmission Date: 20110831
  Serious: Yes (Hospitalization, Other)
  Sender: FDA-Public Use
  Company Number: JP-JNJFOC-20101004301

PATIENT
  Sex: Male
  Weight: 59 kg

DRUGS (16)
  1. RISPERDAL [Suspect]
     Indication: SCHIZOPHRENIA
     Route: 048
  2. MARZULENE S [Concomitant]
     Route: 048
  3. RISPERDAL CONSTA [Suspect]
     Indication: SCHIZOPHRENIA
     Route: 030
  4. RISPERDAL CONSTA [Suspect]
     Route: 030
  5. ZYPREXA [Suspect]
     Indication: SCHIZOPHRENIA
     Route: 048
  6. KAMAG G [Concomitant]
     Indication: CONSTIPATION
     Route: 048
  7. HERBAL NERVE TONIC LIQUID [Concomitant]
     Indication: CONSTIPATION
     Route: 048
  8. LODOPIN [Suspect]
     Indication: SCHIZOPHRENIA
     Route: 048
  9. ALOSENN [Concomitant]
     Indication: CONSTIPATION
     Route: 048
  10. BLOPRESS [Concomitant]
     Indication: HYPERTENSION
     Route: 048
  11. RISPERDAL CONSTA [Suspect]
     Route: 030
  12. ASPARA K [Concomitant]
     Indication: HYPOKALAEMIA
     Route: 048
  13. DORAL [Concomitant]
     Indication: SCHIZOPHRENIA
     Route: 048
  14. SENNOSIDE [Concomitant]
     Indication: CONSTIPATION
     Route: 048
  15. AMLODIPINE [Concomitant]
     Indication: HYPERTENSION
     Route: 048
  16. LIMAS [Suspect]
     Indication: SCHIZOPHRENIA
     Route: 048

REACTIONS (6)
  - NEUROLEPTIC MALIGNANT SYNDROME [None]
  - HYPOTONIA [None]
  - DYSPHAGIA [None]
  - DEHYDRATION [None]
  - GENERAL PHYSICAL CONDITION ABNORMAL [None]
  - DECREASED APPETITE [None]
